FAERS Safety Report 16105750 (Version 1)
Quarter: 2019Q1

REPORT INFORMATION
  Report Type: Report from Study
  Country: CN (occurrence: CN)
  Receive Date: 20190322
  Receipt Date: 20190322
  Transmission Date: 20190418
  Serious: Yes (Other)
  Sender: FDA-Public Use
  Company Number: CN-ROCHE-2282062

PATIENT
  Sex: Female

DRUGS (4)
  1. CAPECITABINE. [Suspect]
     Active Substance: CAPECITABINE
     Indication: TRIPLE NEGATIVE BREAST CANCER
     Route: 048
  2. DOCETAXEL. [Suspect]
     Active Substance: DOCETAXEL
     Indication: TRIPLE NEGATIVE BREAST CANCER
     Route: 041
  3. BEVACIZUMAB. [Suspect]
     Active Substance: BEVACIZUMAB
     Indication: TRIPLE NEGATIVE BREAST CANCER
     Route: 041
  4. DEXAMETHASONE. [Concomitant]
     Active Substance: DEXAMETHASONE
     Route: 048

REACTIONS (6)
  - Febrile neutropenia [Recovered/Resolved]
  - Neutrophil count decreased [Unknown]
  - Mouth haemorrhage [Unknown]
  - Hypertension [Unknown]
  - Bone marrow failure [Unknown]
  - Proteinuria [Unknown]
